FAERS Safety Report 18741736 (Version 1)
Quarter: 2021Q1

REPORT INFORMATION
  Report Type: Spontaneous
  Country: GR (occurrence: GR)
  Receive Date: 20210114
  Receipt Date: 20210114
  Transmission Date: 20210419
  Serious: Yes (Death, Other)
  Sender: FDA-Public Use
  Company Number: GR-TAKEDA-2021TUS001667

PATIENT
  Age: 46 Year
  Sex: Male

DRUGS (1)
  1. ELAPRASE [Suspect]
     Active Substance: IDURSULFASE
     Indication: MUCOPOLYSACCHARIDOSIS II
     Dosage: UNK, SINCE APPROXIMATELY 10 YEARS
     Route: 065

REACTIONS (2)
  - Cardiopulmonary failure [Fatal]
  - Respiratory tract infection [Fatal]
